FAERS Safety Report 9161110 (Version 2)
Quarter: 2013Q2

REPORT INFORMATION
  Report Type: Spontaneous
  Country: US (occurrence: US)
  Receive Date: 20130313
  Receipt Date: 20130503
  Transmission Date: 20140414
  Serious: Yes (Other)
  Sender: FDA-Public Use
  Company Number: PHHY2013US022892

PATIENT
  Age: 15 Year
  Sex: Female

DRUGS (8)
  1. AZITHROMYCIN [Suspect]
     Indication: ATYPICAL PNEUMONIA
  2. MESALAZINE [Suspect]
     Indication: COLITIS ULCERATIVE
     Dosage: 4.8 MG, PER DAY
  3. PREDNISONE [Concomitant]
  4. LABETALOL [Concomitant]
  5. CLONIDINE [Concomitant]
  6. GANCICLOVIR [Concomitant]
  7. AMLODIPINE [Concomitant]
  8. MERCAPTOPURINE [Concomitant]
     Dosage: 50 MG PER DAY

REACTIONS (18)
  - Focal segmental glomerulosclerosis [Recovering/Resolving]
  - Respiratory failure [Recovering/Resolving]
  - Cytomegalovirus infection [Recovering/Resolving]
  - Atypical pneumonia [Recovering/Resolving]
  - Tachycardia [Recovering/Resolving]
  - Renal failure acute [Recovering/Resolving]
  - Oliguria [Recovering/Resolving]
  - Fluid retention [Recovering/Resolving]
  - Tubulointerstitial nephritis [Recovering/Resolving]
  - Proteinuria [Recovering/Resolving]
  - Renal tubular necrosis [Recovering/Resolving]
  - Oedema peripheral [Recovering/Resolving]
  - Hypertension [Recovering/Resolving]
  - Cough [Recovering/Resolving]
  - Pyrexia [Recovering/Resolving]
  - Productive cough [Recovering/Resolving]
  - Pain [Recovering/Resolving]
  - Malaise [Recovering/Resolving]
